FAERS Safety Report 14615156 (Version 3)
Quarter: 2018Q3

REPORT INFORMATION
  Report Type: Spontaneous
  Country: US (occurrence: US)
  Receive Date: 20180308
  Receipt Date: 20180824
  Transmission Date: 20181010
  Serious: Yes (Death, Hospitalization, Other)
  Sender: FDA-Public Use
  Company Number: US-PFIZER INC-2018091523

PATIENT
  Age: 82 Year
  Sex: Female
  Weight: 47.62 kg

DRUGS (3)
  1. REVATIO [Suspect]
     Active Substance: SILDENAFIL CITRATE
     Indication: PULMONARY FIBROSIS
     Dosage: 20 MG, 3X/DAY (TID)
     Route: 048
     Dates: start: 201704, end: 20180525
  2. ASPIRIN. [Concomitant]
     Active Substance: ASPIRIN
  3. REVATIO [Suspect]
     Active Substance: SILDENAFIL CITRATE
     Indication: PULMONARY HYPERTENSION
     Dosage: 20 MG, 3X/DAY

REACTIONS (11)
  - Pneumonia [Fatal]
  - Cardiac failure [Unknown]
  - Pulmonary oedema [Unknown]
  - Dyspnoea [Unknown]
  - Abnormal behaviour [Unknown]
  - Fall [Unknown]
  - Oedema peripheral [Unknown]
  - Atrial fibrillation [Unknown]
  - Carbon dioxide increased [Unknown]
  - Scratch [Unknown]
  - Cardiac failure congestive [Unknown]

NARRATIVE: CASE EVENT DATE: 20180526
